FAERS Safety Report 9769279 (Version 5)
Quarter: 2015Q1

REPORT INFORMATION
  Report Type: Spontaneous
  Country: US (occurrence: US)
  Receive Date: 20131218
  Receipt Date: 20150319
  Transmission Date: 20150721
  Serious: Yes (Hospitalization, Other)
  Sender: FDA-Public Use
  Company Number: US-009507513-1312USA005245

PATIENT
  Sex: Female
  Weight: 70.3 kg

DRUGS (6)
  1. CHOLECALCIFEROL [Concomitant]
     Active Substance: CHOLECALCIFEROL
     Dosage: 1000 IU, UNK
     Dates: start: 1995
  2. FOSAMAX [Suspect]
     Active Substance: ALENDRONATE SODIUM
     Indication: SENILE OSTEOPOROSIS
     Dosage: 70 MG, UNK
     Route: 048
     Dates: start: 200407, end: 2008
  3. FOSAMAX [Suspect]
     Active Substance: ALENDRONATE SODIUM
     Dosage: 10 MG, QD
     Route: 048
     Dates: end: 200009
  4. CALCIUM (UNSPECIFIED) [Concomitant]
     Active Substance: CALCIUM
     Dosage: 1200 MG, UNK
     Dates: start: 1995
  5. ALENDRONATE SODIUM. [Suspect]
     Active Substance: ALENDRONATE SODIUM
     Indication: SENILE OSTEOPOROSIS
     Dosage: 70 MG, UNK
     Route: 048
     Dates: start: 2005, end: 2013
  6. FOSAMAX [Suspect]
     Active Substance: ALENDRONATE SODIUM
     Dosage: 35 MG, QW
     Route: 048
     Dates: start: 200009

REACTIONS (25)
  - Granuloma [Unknown]
  - Trigger finger [Unknown]
  - Onychomycosis [Unknown]
  - Pelvic fracture [Unknown]
  - Hiatus hernia [Unknown]
  - Pulmonary mass [Unknown]
  - Pain [Unknown]
  - Supraventricular extrasystoles [Unknown]
  - Arteriosclerosis coronary artery [Unknown]
  - Intramedullary rod insertion [Unknown]
  - Rib fracture [Unknown]
  - Intervertebral disc protrusion [Unknown]
  - Pain [Unknown]
  - Fall [Unknown]
  - Blood triglycerides increased [Unknown]
  - Femur fracture [Unknown]
  - Scoliosis [Unknown]
  - Lymph node calcification [Unknown]
  - Intervertebral disc degeneration [Unknown]
  - Gastrooesophageal reflux disease [Unknown]
  - Chronic sinusitis [Unknown]
  - Fall [Unknown]
  - Foot operation [Unknown]
  - Bone metabolism disorder [Unknown]
  - Deep vein thrombosis [Unknown]

NARRATIVE: CASE EVENT DATE: 1996
